FAERS Safety Report 10684533 (Version 1)
Quarter: 2014Q4

REPORT INFORMATION
  Report Type: Spontaneous
  Country: US (occurrence: None)
  Receive Date: 20141230
  Receipt Date: 20141230
  Transmission Date: 20150529
  Serious: Yes (Hospitalization, Disabling)
  Sender: FDA-Public Use
  Company Number: None

PATIENT
  Age: 58 Year
  Sex: Male
  Weight: 97.52 kg

DRUGS (9)
  1. SUPER FOOD HERBAL SUP. + VITAMINCS [Concomitant]
  2. OXCODONE [Concomitant]
  3. OPANA ER [Suspect]
     Active Substance: OXYMORPHONE HYDROCHLORIDE
     Indication: PAIN
     Dosage: 30 @10MG?3 PILLS DAY 10MG?2 PILLS DAILY?TWICE A DAY ?BY MOUTH
     Route: 048
  4. AMODIPINE [Concomitant]
  5. OPANA ER [Suspect]
     Active Substance: OXYMORPHONE HYDROCHLORIDE
     Indication: PRODUCT FORMULATION ISSUE
     Dosage: 30 @10MG?3 PILLS DAY 10MG?2 PILLS DAILY?TWICE A DAY ?BY MOUTH
     Route: 048
  6. GLIMEPRIDE [Concomitant]
     Active Substance: GLIMEPIRIDE
  7. WARFARIN [Concomitant]
     Active Substance: WARFARIN
  8. LISINOPRIL. [Concomitant]
     Active Substance: LISINOPRIL
  9. METFORMIN [Concomitant]
     Active Substance: METFORMIN HYDROCHLORIDE

REACTIONS (12)
  - Constipation [None]
  - Product formulation issue [None]
  - Renal disorder [None]
  - Diabetes mellitus [None]
  - Reaction to drug excipients [None]
  - Thrombosis [None]
  - Fat tissue increased [None]
  - Weight increased [None]
  - Blood viscosity increased [None]
  - Blood cholesterol increased [None]
  - Abdominal distension [None]
  - Hepatic steatosis [None]
